FAERS Safety Report 6733592-8 (Version None)
Quarter: 2010Q2

REPORT INFORMATION
  Report Type: 
  Country: None (occurrence: None)
  Receive Date: 20100520
  Receipt Date: 20100519
  Transmission Date: 20101027
  Serious: Yes (Other)
  Sender: FDA-Public Use
  Company Number: IN-ROXANE LABORATORIES, INC.-2010-RO-00589RO

PATIENT
  Age: 23 Year
  Sex: Male

DRUGS (8)
  1. FUROSEMIDE [Suspect]
     Indication: RHEUMATIC HEART DISEASE
     Dosage: 40 MG
     Dates: start: 20080201
  2. FUROSEMIDE [Suspect]
     Indication: MITRAL VALVE STENOSIS
  3. FUROSEMIDE [Suspect]
     Indication: TRICUSPID VALVE INCOMPETENCE
  4. FUROSEMIDE [Suspect]
     Indication: ATRIAL FIBRILLATION
  5. DIGOXIN [Suspect]
     Indication: RHEUMATIC HEART DISEASE
     Dosage: 0.25 MG
     Dates: start: 20080201
  6. DIGOXIN [Suspect]
     Indication: MITRAL VALVE STENOSIS
  7. DIGOXIN [Suspect]
     Indication: TRICUSPID VALVE INCOMPETENCE
  8. DIGOXIN [Suspect]
     Indication: ATRIAL FIBRILLATION

REACTIONS (1)
  - GYNAECOMASTIA [None]
